FAERS Safety Report 5422006-6 (Version None)
Quarter: 2007Q3

REPORT INFORMATION
  Report Type: 
  Country: None (occurrence: None)
  Receive Date: 20070822
  Receipt Date: 20070817
  Transmission Date: 20080115
  Serious: Yes (Life-Threatening, Hospitalization)
  Sender: FDA-Public Use
  Company Number: KR-BRISTOL-MYERS SQUIBB COMPANY-13883285

PATIENT
  Age: 68 Year
  Sex: Male

DRUGS (10)
  1. CETUXIMAB [Suspect]
     Indication: GASTRIC CANCER
     Dosage: CETUXIMAB 2MG/ML
     Route: 042
  2. LEUCOVORIN CALCIUM [Suspect]
     Indication: GASTRIC CANCER
     Route: 042
  3. FLUOROURACIL [Suspect]
     Indication: GASTRIC CANCER
     Route: 042
  4. OXALIPLATIN [Suspect]
     Indication: GASTRIC CANCER
     Route: 042
  5. GABAPENTIN [Concomitant]
  6. TRAMADOL HCL [Concomitant]
  7. MAGNESIUM OXIDE [Concomitant]
  8. PANTOPRAZOLE SODIUM [Concomitant]
  9. MOSAPRIDE CITRATE [Concomitant]
  10. LACTULOSE [Concomitant]

REACTIONS (9)
  - AZOTAEMIA [None]
  - C-REACTIVE PROTEIN INCREASED [None]
  - HYPOTENSION [None]
  - HYPOXIA [None]
  - MENTAL STATUS CHANGES [None]
  - NEUTROPENIA [None]
  - PANCYTOPENIA [None]
  - PNEUMONIA [None]
  - SEPTIC SHOCK [None]
